FAERS Safety Report 12494614 (Version 1)
Quarter: 2016Q2

REPORT INFORMATION
  Report Type: Report from Study
  Country: IN (occurrence: IN)
  Receive Date: 20160624
  Receipt Date: 20160624
  Transmission Date: 20160815
  Serious: Yes (Other)
  Sender: FDA-Public Use
  Company Number: IN-UCBSA-2016023433

PATIENT

DRUGS (1)
  1. LEVETIRACETAM. [Suspect]
     Active Substance: LEVETIRACETAM
     Indication: EPILEPSY
     Dosage: 1000 MG DAILY
     Route: 064
     Dates: end: 201307

REACTIONS (2)
  - Patent ductus arteriosus [Unknown]
  - Foetal exposure during pregnancy [Unknown]
